FAERS Safety Report 5679364-7 (Version None)
Quarter: 2008Q1

REPORT INFORMATION
  Report Type: 
  Country: None (occurrence: None)
  Receive Date: 20080325
  Receipt Date: 20080316
  Transmission Date: 20080703
  Serious: Yes (Other)
  Sender: FDA-Public Use
  Company Number: HR-PFIZER INC-2008011497

PATIENT
  Sex: Male

DRUGS (2)
  1. NORVASC [Suspect]
     Indication: HYPERTENSION
     Route: 048
     Dates: start: 20050503, end: 20071101
  2. LACIPIL [Concomitant]
     Dosage: DAILY DOSE:4MG-FREQ:DAILY
     Route: 048

REACTIONS (1)
  - ECZEMA NUMMULAR [None]
